FAERS Safety Report 6335708-4 (Version None)
Quarter: 2009Q3

REPORT INFORMATION
  Report Type: 
  Country: None (occurrence: None)
  Receive Date: 20090831
  Receipt Date: 20090821
  Transmission Date: 20100115
  Serious: Yes (Hospitalization)
  Sender: FDA-Public Use
  Company Number: RU-GENENTECH-289324

PATIENT
  Age: 60 Year
  Sex: Female

DRUGS (4)
  1. BEVACIZUMAB [Suspect]
     Indication: RENAL CANCER
     Dosage: 10 MG/KG, Q2W
     Route: 042
     Dates: start: 20090702, end: 20090806
  2. INTERFERON ALFA [Suspect]
     Indication: RENAL CELL CARCINOMA
     Dosage: UNK
     Route: 058
     Dates: start: 20090702, end: 20090806
  3. GLIBENCLAMIDE [Suspect]
     Indication: DIABETES MELLITUS
     Dosage: UNK
     Route: 065
     Dates: start: 20060101, end: 20090813
  4. BUFORMIN [Suspect]
     Indication: DIABETES MELLITUS
     Dosage: UNK
     Route: 065
     Dates: start: 20060101, end: 20090813

REACTIONS (1)
  - TRANSAMINASES INCREASED [None]
